FAERS Safety Report 6204778-6 (Version None)
Quarter: 2009Q2

REPORT INFORMATION
  Report Type: 
  Country: None (occurrence: None)
  Receive Date: 20090527
  Receipt Date: 20090515
  Transmission Date: 20091009
  Serious: Yes (Hospitalization, Other)
  Sender: FDA-Public Use
  Company Number: DE-PFIZER INC-2009179826

PATIENT

DRUGS (3)
  1. ZOLOFT [Suspect]
     Indication: DEPRESSION
     Dosage: 100 MG, 1X/DAY
     Route: 048
     Dates: start: 20010101, end: 20061001
  2. TEGRETOL [Suspect]
     Dosage: 200 MG, 1X/DAY
     Dates: start: 20060101, end: 20061001
  3. ALLOPURINOL [Concomitant]
     Indication: HYPERURICAEMIA
     Dosage: 300 MG, 1X/DAY
     Dates: start: 20050817

REACTIONS (12)
  - ABDOMINAL DISCOMFORT [None]
  - ADJUSTMENT DISORDER [None]
  - AGGRESSION [None]
  - ALCOHOL ABUSE [None]
  - ASTHENIA [None]
  - DEPRESSION [None]
  - HYPERHIDROSIS [None]
  - LEUKOCYTOSIS [None]
  - MEMORY IMPAIRMENT [None]
  - PERSONALITY DISORDER [None]
  - PSYCHIATRIC SYMPTOM [None]
  - SUICIDAL IDEATION [None]
